FAERS Safety Report 12825089 (Version 1)
Quarter: 2016Q4

REPORT INFORMATION
  Report Type: Report from Study
  Country: US (occurrence: US)
  Receive Date: 20161006
  Receipt Date: 20161006
  Transmission Date: 20170207
  Serious: No
  Sender: FDA-Public Use
  Company Number: US-AMGEN-USASL2016130398

PATIENT
  Age: 70 Year
  Sex: Female

DRUGS (1)
  1. PROLIA [Suspect]
     Active Substance: DENOSUMAB
     Indication: OSTEOPENIA
     Dosage: UNK, UNK
     Route: 065
     Dates: start: 20160301

REACTIONS (4)
  - Noninfective gingivitis [Recovered/Resolved]
  - Sensitivity of teeth [Recovered/Resolved]
  - Gingival pain [Unknown]
  - Off label use [Unknown]

NARRATIVE: CASE EVENT DATE: 201603
